FAERS Safety Report 8416477-0 (Version None)
Quarter: 2012Q2

REPORT INFORMATION
  Report Type: 
  Country: None (occurrence: None)
  Receive Date: 20120606
  Receipt Date: 20120528
  Transmission Date: 20120825
  Serious: Yes (Other)
  Sender: FDA-Public Use
  Company Number: CA-JNJFOC-20120520123

PATIENT
  Sex: Male
  Weight: 66 kg

DRUGS (4)
  1. AZATHIOPRINE [Concomitant]
     Route: 065
  2. PERCOCET [Concomitant]
     Route: 065
  3. REMICADE [Suspect]
     Indication: CROHN'S DISEASE
     Dosage: RECEIVED 2 DOSES; NEXT DOSE IN 4 WEEKS; MAINTENANCE DOSE IN EVERY 8 WEEKS.
     Route: 042
     Dates: start: 20120504
  4. IMOVANE [Concomitant]
     Route: 065

REACTIONS (1)
  - JOINT SWELLING [None]
